FAERS Safety Report 16215002 (Version 1)
Quarter: 2019Q2

REPORT INFORMATION
  Report Type: Spontaneous
  Country: US (occurrence: US)
  Receive Date: 20190418
  Receipt Date: 20190418
  Transmission Date: 20190711
  Serious: Yes (Hospitalization)
  Sender: FDA-Public Use
  Company Number: None

PATIENT
  Age: 39 Year
  Sex: Female

DRUGS (2)
  1. PROPOFOL. [Suspect]
     Active Substance: PROPOFOL
     Indication: SURGERY
     Dosage: ?          OTHER FREQUENCY:ONCE;?
     Route: 040
     Dates: start: 20190221
  2. BUPIVACAINE. [Suspect]
     Active Substance: BUPIVACAINE
     Indication: SURGERY
     Dosage: ?          OTHER FREQUENCY:ONCE;OTHER ROUTE:SUBFASCIAL?
     Dates: start: 20190221

REACTIONS (1)
  - Seizure [None]

NARRATIVE: CASE EVENT DATE: 20190221
